FAERS Safety Report 4388750-7 (Version None)
Quarter: 2004Q2

REPORT INFORMATION
  Report Type: 
  Country: None (occurrence: None)
  Receive Date: 20040624
  Receipt Date: 20040615
  Transmission Date: 20050107
  Serious: Yes (Death, Life-Threatening, Other)
  Sender: FDA-Public Use
  Company Number: 2003035329

PATIENT
  Age: 76 Year
  Sex: Male

DRUGS (2)
  1. GEODON [Suspect]
     Indication: AGGRESSION
     Dates: start: 20030729
  2. GEODON [Suspect]
     Indication: AGITATION
     Dates: start: 20030729

REACTIONS (3)
  - ARRHYTHMIA [None]
  - CARDIAC ARREST [None]
  - VENTRICULAR FIBRILLATION [None]
